FAERS Safety Report 9218048 (Version 1)
Quarter: 2013Q2

REPORT INFORMATION
  Report Type: Spontaneous
  Country: US (occurrence: US)
  Receive Date: 20130408
  Receipt Date: 20130408
  Transmission Date: 20140414
  Serious: Yes (Hospitalization)
  Sender: FDA-Public Use
  Company Number: US-GLAXOSMITHKLINE-A0833296A

PATIENT
  Sex: Female

DRUGS (2)
  1. AVANDIA [Suspect]
     Indication: TYPE 2 DIABETES MELLITUS
     Route: 048
  2. AVANDAMET [Suspect]
     Indication: TYPE 2 DIABETES MELLITUS
     Route: 048

REACTIONS (6)
  - Cerebrovascular accident [Not Recovered/Not Resolved]
  - Cardiac failure congestive [Unknown]
  - Heart injury [Unknown]
  - Cerebrovascular disorder [Unknown]
  - Thrombosis [Unknown]
  - Cardiomyopathy [Unknown]
